FAERS Safety Report 9313197 (Version 1)
Quarter: 2013Q2

REPORT INFORMATION
  Report Type: Spontaneous
  Country: US (occurrence: US)
  Receive Date: 20130528
  Receipt Date: 20130528
  Transmission Date: 20140414
  Serious: Yes (Other)
  Sender: FDA-Public Use
  Company Number: US-ROCHE-1227393

PATIENT
  Age: 53 Year
  Sex: Female
  Weight: 65.83 kg

DRUGS (5)
  1. TORADOL [Suspect]
     Indication: PRODUCT USED FOR UNKNOWN INDICATION
     Route: 065
     Dates: start: 201304
  2. IBUPROFEN [Concomitant]
     Route: 065
  3. TRAMADOL [Concomitant]
     Route: 065
  4. TIZANIDINE [Concomitant]
     Route: 065
  5. POTASSIUM CHLORIDE [Concomitant]
     Route: 048

REACTIONS (3)
  - Blood potassium decreased [Unknown]
  - Infection [Unknown]
  - Chromaturia [Unknown]
